FAERS Safety Report 10965113 (Version 14)
Quarter: 2016Q1

REPORT INFORMATION
  Report Type: Report from Study
  Country: AU (occurrence: AU)
  Receive Date: 20150330
  Receipt Date: 20160201
  Transmission Date: 20160525
  Serious: Yes (Hospitalization)
  Sender: FDA-Public Use
  Company Number: AU-ROCHE-1555618

PATIENT
  Age: 39 Year
  Sex: Female
  Weight: 65.7 kg

DRUGS (70)
  1. GDC-0199 (BCL-2 SELECTIVE INHIBITOR) [Suspect]
     Active Substance: VENETOCLAX
     Indication: NON-HODGKIN^S LYMPHOMA
     Dosage: MOST RECENT DOSE PRIOR TO AE : 10/DEC/2014,
     Route: 048
     Dates: start: 20141013
  2. TEMAZEPAM. [Concomitant]
     Active Substance: TEMAZEPAM
     Indication: INSOMNIA
     Route: 065
     Dates: start: 20150114, end: 20150114
  3. TARGIN [Concomitant]
     Active Substance: NALOXONE HYDROCHLORIDE\OXYCODONE HYDROCHLORIDE
     Indication: POST LUMBAR PUNCTURE SYNDROME
     Route: 065
     Dates: start: 20150115, end: 20150116
  4. HYDROCORTISONE. [Concomitant]
     Active Substance: HYDROCORTISONE
     Indication: PROPHYLAXIS
     Route: 065
     Dates: start: 20141010, end: 20141010
  5. MAXOLON [Concomitant]
     Active Substance: METOCLOPRAMIDE HYDROCHLORIDE
     Route: 065
     Dates: start: 20141121, end: 20141121
  6. ONDANSETRON [Concomitant]
     Active Substance: ONDANSETRON
     Indication: PROPHYLAXIS OF NAUSEA AND VOMITING
     Route: 065
     Dates: start: 20141010, end: 20141012
  7. GLYCERINE SUPPOSITORY [Concomitant]
     Indication: CONSTIPATION
     Route: 065
     Dates: start: 20141017, end: 20141017
  8. ENDONE [Concomitant]
     Active Substance: OXYCODONE HYDROCHLORIDE
     Indication: HEADACHE
     Route: 065
     Dates: start: 20141126, end: 20141126
  9. DOXORUBICIN [Suspect]
     Active Substance: DOXORUBICIN
     Indication: NON-HODGKIN^S LYMPHOMA
     Dosage: MOST RECENT DOSE PRIOR TO AE : 21/NOV/2014 AT 14.20
     Route: 065
     Dates: start: 20141010
  10. ALLOPURINOL. [Concomitant]
     Active Substance: ALLOPURINOL
     Dosage: INDICATION : TUMOURLYSIS PROPHYLAXSIS
     Route: 065
     Dates: start: 20141007, end: 20141127
  11. PANADOL (AUSTRALIA) [Concomitant]
     Indication: PYREXIA
     Route: 065
     Dates: start: 20141017, end: 20141017
  12. CETRIZINE [Concomitant]
     Active Substance: CETIRIZINE HYDROCHLORIDE
     Route: 065
     Dates: start: 20141017, end: 20141017
  13. PEGFILGRASTIM [Concomitant]
     Active Substance: PEGFILGRASTIM
     Indication: PROPHYLAXIS
     Route: 065
     Dates: start: 20141103, end: 20141103
  14. TAZOCIN [Concomitant]
     Active Substance: PIPERACILLIN SODIUM\TAZOBACTAM SODIUM
     Indication: FEBRILE NEUTROPENIA
     Route: 065
     Dates: start: 20141022, end: 20141025
  15. TAZOCIN [Concomitant]
     Active Substance: PIPERACILLIN SODIUM\TAZOBACTAM SODIUM
     Indication: PYREXIA
     Route: 065
     Dates: start: 20141123, end: 20141124
  16. CYCLOPHOSPHAMIDE. [Suspect]
     Active Substance: CYCLOPHOSPHAMIDE
     Indication: NON-HODGKIN^S LYMPHOMA
     Dosage: MOST RECENT DOSE PRIOR TO AE : 21/NOV/2014 AT 14.50
     Route: 065
     Dates: start: 20141010
  17. TEMAZEPAM. [Concomitant]
     Active Substance: TEMAZEPAM
     Route: 065
     Dates: start: 20141130, end: 20141130
  18. NORMAL SALINE [Concomitant]
     Active Substance: SODIUM CHLORIDE
     Indication: POST LUMBAR PUNCTURE SYNDROME
     Route: 065
     Dates: start: 20150113, end: 20150114
  19. NORMAL SALINE [Concomitant]
     Active Substance: SODIUM CHLORIDE
     Route: 065
     Dates: start: 20141123, end: 20141125
  20. PANADOL (AUSTRALIA) [Concomitant]
     Route: 065
     Dates: start: 20141126, end: 20141130
  21. HYDROCORTISONE. [Concomitant]
     Active Substance: HYDROCORTISONE
     Route: 065
     Dates: start: 20141028, end: 20141028
  22. DEXTROSE. [Concomitant]
     Active Substance: DEXTROSE
     Dosage: INDICATION: TLS PROPHYLAXIS
     Route: 065
     Dates: start: 20141013, end: 20141013
  23. PANTOPRAZOLE [Concomitant]
     Active Substance: PANTOPRAZOLE SODIUM
     Indication: DYSPEPSIA
     Route: 065
     Dates: start: 20141013, end: 20141217
  24. ZOFRAN [Concomitant]
     Active Substance: ONDANSETRON HYDROCHLORIDE
     Indication: PROPHYLAXIS OF NAUSEA AND VOMITING
     Route: 065
     Dates: start: 20141031, end: 20141031
  25. ENDONE [Concomitant]
     Active Substance: OXYCODONE HYDROCHLORIDE
     Indication: HEADACHE
     Route: 065
     Dates: start: 20141110, end: 20141110
  26. VALACICLOVIR [Concomitant]
     Active Substance: VALACYCLOVIR HYDROCHLORIDE
     Indication: TINNITUS
     Route: 065
     Dates: start: 20150108
  27. NORMAL SALINE [Concomitant]
     Active Substance: SODIUM CHLORIDE
     Route: 065
     Dates: start: 20141126, end: 20141128
  28. CETRIZINE [Concomitant]
     Active Substance: CETIRIZINE HYDROCHLORIDE
     Route: 065
     Dates: start: 20141121, end: 20141121
  29. MAXOLON [Concomitant]
     Active Substance: METOCLOPRAMIDE HYDROCHLORIDE
     Indication: NAUSEA
     Route: 065
     Dates: start: 20141031, end: 20141031
  30. PEGFILGRASTIM [Concomitant]
     Active Substance: PEGFILGRASTIM
     Route: 065
     Dates: start: 20141124, end: 20141124
  31. TAZOCIN [Concomitant]
     Active Substance: PIPERACILLIN SODIUM\TAZOBACTAM SODIUM
     Route: 065
     Dates: start: 20141126, end: 20141129
  32. LACTULOSE. [Concomitant]
     Active Substance: LACTULOSE
     Indication: CONSTIPATION
     Route: 065
     Dates: start: 20141024, end: 20141024
  33. PANADEINE FORTE [Concomitant]
     Active Substance: ACETAMINOPHEN\CODEINE PHOSPHATE
     Indication: BONE PAIN
     Route: 065
     Dates: start: 20141025, end: 20141114
  34. AUGMENTIN DUO FORTE [Concomitant]
     Active Substance: AMOXICILLIN\CLAVULANATE POTASSIUM
     Indication: FEBRILE NEUTROPENIA
     Route: 065
     Dates: start: 20141025, end: 20141103
  35. RULIDE [Concomitant]
     Active Substance: ROXITHROMYCIN
     Indication: UPPER RESPIRATORY TRACT INFECTION
     Route: 065
     Dates: start: 20141231, end: 20150105
  36. CYMBALTA [Suspect]
     Active Substance: DULOXETINE HYDROCHLORIDE
     Indication: ANXIETY
     Route: 065
     Dates: start: 2012, end: 20150423
  37. VALACICLOVIR [Concomitant]
     Active Substance: VALACYCLOVIR HYDROCHLORIDE
     Dosage: INFECTIVE PROPYLAXSIS
     Route: 065
     Dates: start: 20140911, end: 20141217
  38. TEMAZEPAM. [Concomitant]
     Active Substance: TEMAZEPAM
     Route: 065
     Dates: start: 20141124, end: 20141124
  39. NORMAL SALINE [Concomitant]
     Active Substance: SODIUM CHLORIDE
     Indication: DRUG-INDUCED LIVER INJURY
     Route: 065
     Dates: start: 20150505, end: 20150510
  40. LORAZEPAM. [Concomitant]
     Active Substance: LORAZEPAM
     Indication: ANXIETY
     Route: 065
     Dates: start: 201504
  41. PANADOL (AUSTRALIA) [Concomitant]
     Indication: PROPHYLAXIS
     Route: 065
     Dates: start: 20141010, end: 20141010
  42. PANADOL (AUSTRALIA) [Concomitant]
     Route: 065
     Dates: start: 20141031, end: 20141031
  43. CETRIZINE [Concomitant]
     Active Substance: CETIRIZINE HYDROCHLORIDE
     Indication: PROPHYLAXIS
     Route: 065
     Dates: start: 20141010, end: 20141010
  44. FILGRASTIM [Concomitant]
     Active Substance: FILGRASTIM
     Indication: FEBRILE NEUTROPENIA
     Route: 065
     Dates: start: 20141023, end: 20141023
  45. VINCRISTINE [Suspect]
     Active Substance: VINCRISTINE
     Indication: NON-HODGKIN^S LYMPHOMA
     Dosage: MOST RECENT DOSE PRIOR TO AE : 21/NOV/2014 AT 14.35
     Route: 065
     Dates: start: 20141010
  46. NORMAL SALINE [Concomitant]
     Active Substance: SODIUM CHLORIDE
     Indication: PYREXIA
     Dosage: INDICATION: TLS PROPHYLAXIS
     Route: 065
     Dates: start: 20141013, end: 20141013
  47. LORAZEPAM. [Concomitant]
     Active Substance: LORAZEPAM
     Route: 065
     Dates: start: 20141125, end: 20141125
  48. PANADOL (AUSTRALIA) [Concomitant]
     Route: 065
     Dates: start: 20141028, end: 20141028
  49. PANADOL (AUSTRALIA) [Concomitant]
     Route: 065
     Dates: start: 20141023, end: 20141025
  50. PANADOL (AUSTRALIA) [Concomitant]
     Route: 065
     Dates: start: 20141121, end: 20141121
  51. CETRIZINE [Concomitant]
     Active Substance: CETIRIZINE HYDROCHLORIDE
     Route: 065
     Dates: start: 20141028, end: 20141028
  52. CETRIZINE [Concomitant]
     Active Substance: CETIRIZINE HYDROCHLORIDE
     Route: 065
     Dates: start: 20141031, end: 20141031
  53. HYDROCORTISONE. [Concomitant]
     Active Substance: HYDROCORTISONE
     Route: 065
     Dates: start: 20141121, end: 20141121
  54. COLOXYL + SENNA [Concomitant]
  55. SLOW K [Concomitant]
     Active Substance: POTASSIUM CHLORIDE
     Dosage: INDICATION: HYPOKALAEMIA PROPYLAXSIS
     Route: 065
     Dates: start: 20141025, end: 20141025
  56. ENOXAPARIN [Concomitant]
     Active Substance: ENOXAPARIN
     Dosage: DVT PROPYLAXSIS
     Route: 065
     Dates: start: 20141124, end: 20141124
  57. OBINUTUZUMAB [Suspect]
     Active Substance: OBINUTUZUMAB
     Indication: NON-HODGKIN^S LYMPHOMA
     Dosage: MOST RECENT DOSE PRIOR TO AE : 21/NOV/2014 AT 10.05
     Route: 065
     Dates: start: 20141010
  58. BACTRIM [Suspect]
     Active Substance: SULFAMETHOXAZOLE\TRIMETHOPRIM
     Indication: PRODUCT USED FOR UNKNOWN INDICATION
     Route: 065
     Dates: start: 20140911, end: 20141217
  59. BACTRIM [Suspect]
     Active Substance: SULFAMETHOXAZOLE\TRIMETHOPRIM
     Route: 065
  60. PANADOL (AUSTRALIA) [Concomitant]
     Route: 065
     Dates: start: 20141123, end: 20141124
  61. HYDROCORTISONE. [Concomitant]
     Active Substance: HYDROCORTISONE
     Route: 065
     Dates: start: 20141017, end: 20141017
  62. MAXOLON [Concomitant]
     Active Substance: METOCLOPRAMIDE HYDROCHLORIDE
     Indication: PROPHYLAXIS OF NAUSEA AND VOMITING
     Route: 065
     Dates: start: 20141010, end: 20141217
  63. MAXOLON [Concomitant]
     Active Substance: METOCLOPRAMIDE HYDROCHLORIDE
     Route: 065
     Dates: start: 20141023, end: 20141023
  64. MICROLAX (AUSTRALIA) [Concomitant]
     Indication: CONSTIPATION
     Dosage: ENEMA
     Route: 065
     Dates: start: 20141017, end: 20141017
  65. ZOFRAN [Concomitant]
     Active Substance: ONDANSETRON HYDROCHLORIDE
     Route: 065
     Dates: start: 20141121, end: 20141122
  66. FILGRASTIM [Concomitant]
     Active Substance: FILGRASTIM
     Route: 065
     Dates: start: 20141025, end: 20141025
  67. AUGMENTIN DUO FORTE [Concomitant]
     Active Substance: AMOXICILLIN\CLAVULANATE POTASSIUM
     Indication: UPPER RESPIRATORY TRACT INFECTION
     Route: 065
     Dates: start: 20141231, end: 20150105
  68. PREDNISONE. [Suspect]
     Active Substance: PREDNISONE
     Indication: NON-HODGKIN^S LYMPHOMA
     Dosage: MOST RECENT DOSE PRIOR TO AE : 25/NOV/2014
     Route: 048
     Dates: start: 20141010
  69. HYDROCORTISONE. [Concomitant]
     Active Substance: HYDROCORTISONE
     Route: 065
     Dates: start: 20141031, end: 20141031
  70. FLEET ENEMA [Concomitant]
     Active Substance: SODIUM PHOSPHATE, DIBASIC\SODIUM PHOSPHATE, MONOBASIC
     Indication: CONSTIPATION
     Route: 065
     Dates: start: 20141017, end: 20141017

REACTIONS (10)
  - Febrile neutropenia [None]
  - Pneumocystis test positive [None]
  - Post lumbar puncture syndrome [None]
  - Pyrexia [None]
  - Cholecystitis acute [None]
  - Drug-induced liver injury [Recovering/Resolving]
  - Hepatic steatosis [None]
  - Pleural effusion [None]
  - Blood potassium increased [None]
  - Simplex virus test positive [None]

NARRATIVE: CASE EVENT DATE: 20150206
